FAERS Safety Report 10505120 (Version 1)
Quarter: 2014Q4

REPORT INFORMATION
  Report Type: Spontaneous
  Country: US (occurrence: US)
  Receive Date: 20141008
  Receipt Date: 20141008
  Transmission Date: 20150528
  Serious: Yes (Other)
  Sender: FDA-Public Use
  Company Number: US-ABBVIE-14P-163-1292350-00

PATIENT
  Sex: Female

DRUGS (5)
  1. JOINT LOGIC [Concomitant]
     Indication: ARTHROPATHY
  2. MSM [Concomitant]
     Active Substance: DIMETHYL SULFONE
     Indication: ARTHROPATHY
  3. SYNTHROID [Suspect]
     Active Substance: LEVOTHYROXINE SODIUM
     Indication: THYROIDECTOMY
     Route: 048
     Dates: start: 1993
  4. VITAMIN C [Concomitant]
     Active Substance: ASCORBIC ACID
     Indication: VITAMIN SUPPLEMENTATION
  5. WHOLE FOOD MULTIVITAMIN [Concomitant]
     Indication: VITAMIN SUPPLEMENTATION

REACTIONS (7)
  - Onychoclasis [Not Recovered/Not Resolved]
  - Tooth injury [Not Recovered/Not Resolved]
  - Cartilage atrophy [Recovering/Resolving]
  - Cartilage atrophy [Recovered/Resolved]
  - Gingivitis [Not Recovered/Not Resolved]
  - Bone density decreased [Not Recovered/Not Resolved]
  - Alopecia [Not Recovered/Not Resolved]

NARRATIVE: CASE EVENT DATE: 2009
